FAERS Safety Report 5037463-7 (Version None)
Quarter: 2006Q2

REPORT INFORMATION
  Report Type: 
  Country: None (occurrence: None)
  Receive Date: 20060628
  Receipt Date: 20050726
  Transmission Date: 20061013
  Serious: No
  Sender: FDA-Public Use
  Company Number: US-GLAXOSMITHKLINE-A0567720A

PATIENT
  Sex: Male

DRUGS (4)
  1. ALBUTEROL [Suspect]
     Indication: CHRONIC OBSTRUCTIVE PULMONARY DISEASE
     Dosage: 1PUFF AS REQUIRED
     Route: 055
     Dates: start: 20030101
  2. THEO-DUR [Concomitant]
  3. MEDROL [Concomitant]
  4. DURICEF [Concomitant]

REACTIONS (1)
  - DRUG INEFFECTIVE [None]
